FAERS Safety Report 5425690-6 (Version None)
Quarter: 2007Q3

REPORT INFORMATION
  Report Type: 
  Country: None (occurrence: None)
  Receive Date: 20070824
  Receipt Date: 20070814
  Transmission Date: 20080115
  Serious: Yes (Death)
  Sender: FDA-Public Use
  Company Number: IE-PFIZER INC-2007068006

PATIENT

DRUGS (1)
  1. ZAVEDOS POWDER, STERILE [Suspect]
     Indication: CHEMOTHERAPY

REACTIONS (1)
  - MEDICATION ERROR [None]
